FAERS Safety Report 5286543-X (Version None)
Quarter: 2007Q2

REPORT INFORMATION
  Report Type: 
  Country: None (occurrence: None)
  Receive Date: 20070404
  Receipt Date: 20070327
  Transmission Date: 20071010
  Serious: Yes (Hospitalization)
  Sender: FDA-Public Use
  Company Number: JP-SANOFI-SYNTHELABO-F01200700086

PATIENT
  Sex: Male

DRUGS (19)
  1. CERNILTON [Concomitant]
     Indication: PROSTATITIS
     Route: 048
     Dates: start: 20061218
  2. LAXOBERON [Concomitant]
     Indication: CONSTIPATION
     Route: 048
     Dates: start: 20061213, end: 20070213
  3. PURSENNID [Concomitant]
     Indication: CONSTIPATION
     Route: 048
     Dates: start: 20060916, end: 20070213
  4. BLOPRESS [Concomitant]
     Indication: HYPERTENSION
     Route: 048
     Dates: start: 20061208
  5. NORVASC [Concomitant]
     Indication: HYPERTENSION
     Route: 048
     Dates: start: 20061120
  6. LOXONIN [Concomitant]
     Indication: CANCER PAIN
     Route: 048
     Dates: start: 20061012
  7. OXYCONTIN [Concomitant]
     Indication: CANCER PAIN
     Route: 048
     Dates: start: 20060913
  8. MAGNESIUM OXIDE [Concomitant]
     Indication: CONSTIPATION
     Route: 048
     Dates: start: 20060815, end: 20070213
  9. PARIET [Concomitant]
     Indication: GASTRIC ULCER
     Route: 048
     Dates: start: 20060907
  10. BEVACIZUMAB [Suspect]
     Route: 042
     Dates: start: 20070104, end: 20070104
  11. XELODA [Suspect]
     Route: 048
     Dates: start: 20070111, end: 20070111
  12. OXALIPLATIN [Suspect]
     Indication: RECTAL CANCER
     Route: 042
     Dates: start: 20070104, end: 20070104
  13. GLY [Concomitant]
     Indication: CONSTIPATION
     Route: 054
     Dates: start: 20061213, end: 20070213
  14. KENALOG [Concomitant]
     Indication: STOMATITIS
     Route: 048
     Dates: start: 20060101, end: 20070126
  15. DECADRON [Concomitant]
     Indication: PREMEDICATION
     Route: 042
     Dates: start: 20060914, end: 20070125
  16. KYTRIL [Concomitant]
     Indication: PREMEDICATION
     Route: 042
     Dates: start: 20060914, end: 20070125
  17. AZUNOL [Concomitant]
     Indication: STOMATITIS
     Route: 048
     Dates: start: 20061006, end: 20070126
  18. FLOMOX [Concomitant]
     Indication: PROSTATITIS
     Route: 048
     Dates: start: 20061225, end: 20061231
  19. NEW LECICARBON [Concomitant]
     Indication: CONSTIPATION
     Route: 054
     Dates: start: 20070104, end: 20070213

REACTIONS (1)
  - RECTAL STENOSIS [None]
